FAERS Safety Report 5235763-9 (Version None)
Quarter: 2007Q1

REPORT INFORMATION
  Report Type: 
  Country: None (occurrence: None)
  Receive Date: 20061208
  Receipt Date: 20060619
  Transmission Date: 20070707
  Serious: Yes (Other)
  Sender: FDA-Public Use
  Company Number: 2006UW12974

PATIENT
  Age: 58 Year
  Sex: Male
  Weight: 92.532 kg

DRUGS (2)
  1. CRESTOR [Suspect]
     Indication: BLOOD CHOLESTEROL INCREASED
     Dosage: 10 MG QD PO
     Route: 048
     Dates: start: 20060501
  2. ZESTRIL [Concomitant]

REACTIONS (5)
  - GLOSSITIS [None]
  - HAEMORRHOIDS [None]
  - HYPOGEUSIA [None]
  - ORAL SOFT TISSUE DISORDER [None]
  - RASH [None]
